FAERS Safety Report 24149202 (Version 2)
Quarter: 2024Q3

REPORT INFORMATION
  Report Type: Report from Study
  Country: EG (occurrence: EG)
  Receive Date: 20240729
  Receipt Date: 20240812
  Transmission Date: 20241016
  Serious: Yes (Hospitalization)
  Sender: BIOGEN
  Company Number: EG-BIOGEN-2024BI01275507

PATIENT
  Sex: Female
  Weight: 60 kg

DRUGS (7)
  1. TYSABRI [Suspect]
     Active Substance: NATALIZUMAB
     Indication: Multiple sclerosis
     Route: 050
     Dates: start: 202312
  2. Solupred [Concomitant]
     Indication: Multiple sclerosis
     Dosage: 1 TAB EVERY 8  HOURS
     Route: 050
  3. .ALPHA.-LIPOIC ACID [Concomitant]
     Active Substance: .ALPHA.-LIPOIC ACID
     Indication: Neuropathy peripheral
     Dosage: 1 TAB EVERY 12  HOURS
     Route: 050
  4. GAPTIN [Concomitant]
     Indication: Neuropathy peripheral
     Dosage: 1 TAB DAILY AT  NIGHT
     Route: 050
  5. Milga advance [Concomitant]
     Indication: Neuropathy peripheral
     Dosage: 1 TAB ONCE DAILY
     Route: 050
  6. CONTROLOC [Concomitant]
     Active Substance: PANTOPRAZOLE SODIUM
     Indication: Gastrointestinal disorder
     Dosage: 1 TAB DAILY IN THE  MORNING
     Route: 050
  7. OSTEOCARE [Concomitant]
     Active Substance: CALCIUM\CHOLECALCIFEROL\MAGNESIUM\ZINC
     Indication: Bone disorder
     Dosage: 1 TAB DAILY AFTER  LUNCH
     Route: 050

REACTIONS (1)
  - Multiple sclerosis relapse [Recovered/Resolved]

NARRATIVE: CASE EVENT DATE: 20230101
